FAERS Safety Report 10289172 (Version 2)
Quarter: 2014Q3

REPORT INFORMATION
  Report Type: Spontaneous
  Country: FR (occurrence: FR)
  Receive Date: 20140710
  Receipt Date: 20140819
  Transmission Date: 20150326
  Serious: Yes (Hospitalization, Other)
  Sender: FDA-Public Use
  Company Number: FR-PFIZER INC-2014186343

PATIENT
  Age: 28 Year
  Sex: Female

DRUGS (9)
  1. TEMERIT [Suspect]
     Active Substance: NEBIVOLOL
     Dosage: 5 MG, 1X/DAY
     Route: 048
     Dates: start: 201402
  2. BLEOMYCINE BELLON [Suspect]
     Active Substance: BLEOMYCIN SULFATE
     Indication: HODGKIN^S DISEASE
     Dosage: 9 MG, CYCLIC
     Route: 042
     Dates: start: 20131025
  3. CLIMASTON [Concomitant]
     Active Substance: ESTRADIOL\PROGESTERONE
     Dosage: 10 MG, 1X/DAY
     Route: 048
  4. DOXORUBICINE TEVA [Suspect]
     Active Substance: DOXORUBICIN
     Indication: HODGKIN^S DISEASE
     Dosage: 41.5 MG, CYCLIC
     Route: 042
     Dates: start: 20131025
  5. INEXIUM /01479302/ [Suspect]
     Active Substance: ESOMEPRAZOLE MAGNESIUM
     Dosage: 40 MG, 1X/DAY
     Route: 048
  6. DACARBAZINE LIPOMED [Suspect]
     Active Substance: DACARBAZINE
     Indication: HODGKIN^S DISEASE
     Dosage: 200 MG, CYCLIC
     Route: 042
     Dates: start: 20131025
  7. VFEND [Suspect]
     Active Substance: VORICONAZOLE
     Dosage: 200 MG, 2X/DAY
     Route: 048
     Dates: start: 201404
  8. VELBE [Suspect]
     Active Substance: VINBLASTINE SULFATE
     Indication: HODGKIN^S DISEASE
     Dosage: 10 MG, CYCLIC
     Route: 042
     Dates: start: 20131025
  9. METHYLPREDNISOLONE MYLAN [Suspect]
     Active Substance: METHYLPREDNISOLONE
     Dosage: 200 MG, CYCLIC
     Route: 042
     Dates: start: 20131108

REACTIONS (2)
  - Raynaud^s phenomenon [Not Recovered/Not Resolved]
  - Extremity necrosis [Not Recovered/Not Resolved]

NARRATIVE: CASE EVENT DATE: 201405
